FAERS Safety Report 8840920 (Version 2)
Quarter: 2015Q2

REPORT INFORMATION
  Report Type: Report from Study
  Country: US (occurrence: US)
  Receive Date: 20121015
  Receipt Date: 20150424
  Transmission Date: 20150821
  Serious: Yes (Other)
  Sender: FDA-Public Use
  Company Number: US-ROCHE-1140551

PATIENT
  Sex: Male
  Weight: 19 kg

DRUGS (6)
  1. NUTROPIN AQ [Suspect]
     Active Substance: SOMATROPIN
     Indication: DWARFISM
     Route: 058
     Dates: start: 199811
  2. NUTROPIN AQ [Suspect]
     Active Substance: SOMATROPIN
     Route: 058
  3. NUTROPIN AQ [Suspect]
     Active Substance: SOMATROPIN
     Indication: GROWTH HORMONE DEFICIENCY
     Route: 058
  4. INSULIN [Concomitant]
     Active Substance: INSULIN NOS
     Route: 058
  5. NUTROPIN AQ [Suspect]
     Active Substance: SOMATROPIN
     Route: 058
  6. NUTROPIN AQ [Suspect]
     Active Substance: SOMATROPIN
     Route: 058

REACTIONS (8)
  - Abdominal pain [Recovering/Resolving]
  - Growth retardation [Unknown]
  - Cardiac murmur [Unknown]
  - Contusion [Unknown]
  - Arthralgia [Recovering/Resolving]
  - Muscle spasms [Unknown]
  - Headache [Recovering/Resolving]
  - Increased appetite [Unknown]
